FAERS Safety Report 5858104-2 (Version None)
Quarter: 2008Q3

REPORT INFORMATION
  Report Type: 
  Country: None (occurrence: None)
  Receive Date: 20080818
  Receipt Date: 20080515
  Transmission Date: 20090109
  Serious: No
  Sender: FDA-Public Use
  Company Number: TPA2008A00717

PATIENT
  Age: 75 Year
  Sex: Male

DRUGS (4)
  1. ROZEREM [Suspect]
     Indication: INSOMNIA
     Dosage: 8 MG, QHS, PER ORAL
     Route: 048
  2. CRESTOR [Concomitant]
  3. ZETIA [Concomitant]
  4. PROSCAR [Concomitant]

REACTIONS (1)
  - DRUG INEFFECTIVE [None]
